FAERS Safety Report 16391249 (Version 1)
Quarter: 2019Q2

REPORT INFORMATION
  Report Type: Spontaneous
  Country: IT (occurrence: IT)
  Receive Date: 20190604
  Receipt Date: 20190604
  Transmission Date: 20190711
  Serious: Yes (Hospitalization, Other)
  Sender: FDA-Public Use
  Company Number: IT-ALLERGAN-1923280US

PATIENT
  Age: 64 Year
  Sex: Female

DRUGS (5)
  1. LACTOBACILLUS RHAMNOSUS [Suspect]
     Active Substance: LACTOBACILLUS RHAMNOSUS
  2. METHYLPREDNISOLONE. [Concomitant]
     Active Substance: METHYLPREDNISOLONE
     Dosage: 1.5 MG/KG OD
     Route: 042
  3. MESALAZINE UNK [Suspect]
     Active Substance: MESALAMINE
     Dosage: UNK
     Route: 054
  4. BECLOMETASONE [Concomitant]
     Active Substance: BECLOMETHASONE DIPROPIONATE
     Route: 054
  5. MESALAZINE UNK [Suspect]
     Active Substance: MESALAMINE
     Indication: COLITIS ULCERATIVE
     Dosage: 800 MG, TID
     Route: 048

REACTIONS (3)
  - Pyrexia [Recovered/Resolved]
  - Lactobacillus infection [Unknown]
  - Colitis ulcerative [Not Recovered/Not Resolved]
